FAERS Safety Report 8445696-2 (Version None)
Quarter: 2012Q2

REPORT INFORMATION
  Report Type: 
  Country: None (occurrence: None)
  Receive Date: 20120618
  Receipt Date: 20120607
  Transmission Date: 20120825
  Serious: Yes (Hospitalization)
  Sender: FDA-Public Use
  Company Number: US-GLAXOSMITHKLINE-A0887438A

PATIENT
  Age: 56 Year
  Sex: Male
  Weight: 94.1 kg

DRUGS (1)
  1. AVANDIA [Suspect]
     Indication: TYPE 2 DIABETES MELLITUS
     Dosage: 4MG TWICE PER DAY
     Route: 048
     Dates: end: 20070522

REACTIONS (11)
  - ACTIVITIES OF DAILY LIVING IMPAIRED [None]
  - DILATATION ATRIAL [None]
  - CORONARY ARTERY OCCLUSION [None]
  - PAIN [None]
  - CARDIOMEGALY [None]
  - VENTRICULAR EXTRASYSTOLES [None]
  - MYOCARDIAL INFARCTION [None]
  - MITRAL VALVE INCOMPETENCE [None]
  - DILATATION VENTRICULAR [None]
  - CARDIAC DISORDER [None]
  - CORONARY ARTERY DISEASE [None]
